FAERS Safety Report 9264973 (Version 1)
Quarter: 2013Q2

REPORT INFORMATION
  Report Type: Spontaneous
  Country: KR (occurrence: KR)
  Receive Date: 20130501
  Receipt Date: 20130501
  Transmission Date: 20140414
  Serious: Yes (Hospitalization)
  Sender: FDA-Public Use
  Company Number: KR-ACCORD-017393

PATIENT
  Age: 40 Year
  Sex: Male

DRUGS (7)
  1. BUSULFAN [Concomitant]
     Indication: STEM CELL TRANSPLANT
     Dosage: DAY-6 TO -5
     Route: 042
  2. TACROLIMUS [Suspect]
     Indication: PROPHYLAXIS AGAINST GRAFT VERSUS HOST DISEASE
     Route: 048
  3. FLUDARABINE [Concomitant]
     Indication: STEM CELL TRANSPLANT
     Dosage: ON DAYS -7 TO -3
  4. HEPARIN [Concomitant]
     Indication: VENOOCCLUSIVE LIVER DISEASE
     Dosage: CONTINUOUS INFUSION OF LOW DOSE HEPARIN
  5. URSODEOXYCHOLIC ACID [Concomitant]
     Indication: VENOOCCLUSIVE LIVER DISEASE
  6. METHOTREXATE [Concomitant]
     Indication: PROPHYLAXIS AGAINST GRAFT VERSUS HOST DISEASE
     Dosage: DAYS 1, 3, 6, 11
  7. ANTITHYMOCYTE IMMUNOGLOBULIN [Concomitant]
     Indication: STEM CELL TRANSPLANT
     Dosage: FROM DAY -4 TO -1

REACTIONS (5)
  - Hepatic vein occlusion [Recovered/Resolved]
  - Depressed mood [Unknown]
  - Suicidal ideation [Unknown]
  - Pancreatitis acute [Recovering/Resolving]
  - Off label use [Unknown]
